FAERS Safety Report 19071497 (Version 3)
Quarter: 2021Q2

REPORT INFORMATION
  Report Type: Report from Study
  Country: None (occurrence: RO)
  Receive Date: 20210330
  Receipt Date: 20210411
  Transmission Date: 20210717
  Serious: Yes (Hospitalization)
  Sender: FDA-Public Use
  Company Number: RO-ABBVIE-21K-135-3834214-00

PATIENT
  Age: 43 Year
  Sex: Male

DRUGS (2)
  1. DUODOPA [Suspect]
     Active Substance: CARBIDOPA\LEVODOPA
  2. DUODOPA [Suspect]
     Active Substance: CARBIDOPA\LEVODOPA
     Indication: PARKINSON^S DISEASE
     Dosage: DM=1.40 DC=1.80 ED=1.50 NRED=3; DMN=0.00 DCN=1.00 EDN=1.00 NREDN=0
     Route: 050
     Dates: start: 20130918

REACTIONS (5)
  - On and off phenomenon [Recovering/Resolving]
  - Mental disorder [Recovering/Resolving]
  - Dyskinesia [Recovering/Resolving]
  - Device breakage [Unknown]
  - Device dislocation [Recovering/Resolving]

NARRATIVE: CASE EVENT DATE: 20210322
